FAERS Safety Report 18784937 (Version 2)
Quarter: 2021Q1

REPORT INFORMATION
  Report Type: Spontaneous
  Country: CA (occurrence: CA)
  Receive Date: 20210126
  Receipt Date: 20210219
  Transmission Date: 20210419
  Serious: Yes (Other)
  Sender: FDA-Public Use
  Company Number: CA-CELLTRION INC.-2019CA020452

PATIENT

DRUGS (13)
  1. PANTOLOC [PANTOPRAZOLE] [Concomitant]
     Active Substance: PANTOPRAZOLE SODIUM
     Dosage: 40 MG, 1X/DAY (OD)
  2. INFLECTRA [Suspect]
     Active Substance: INFLIXIMAB-DYYB
     Dosage: 480 MG OR 5 VIALS EVERY 6 WEEKS
     Route: 042
     Dates: start: 20180323, end: 20180323
  3. INFLECTRA [Suspect]
     Active Substance: INFLIXIMAB-DYYB
     Dosage: 500 MG EVERY 6 WEEKS
     Route: 042
     Dates: start: 20190705
  4. TYLENOL [Concomitant]
     Active Substance: ACETAMINOPHEN
     Dosage: 1?2 TABS, AS NEEDED (PRN)
  5. INFLECTRA [Suspect]
     Active Substance: INFLIXIMAB-DYYB
     Dosage: 464 MG, Q (EVERY) 0, 2, 6 WEEKS, THEN EVERY 8 WEEKS (Q6)
     Route: 042
     Dates: start: 20171215, end: 20171215
  6. INFLECTRA [Suspect]
     Active Substance: INFLIXIMAB-DYYB
     Dosage: 500 MG EVERY 6 WEEKS
     Route: 042
     Dates: start: 20190221
  7. INFLECTRA [Suspect]
     Active Substance: INFLIXIMAB-DYYB
     Dosage: 464 MG, Q (EVERY) 0, 2, 6 WEEKS, THEN EVERY 8 WEEKS (Q2)
     Route: 042
     Dates: start: 20171120, end: 20171120
  8. INFLECTRA [Suspect]
     Active Substance: INFLIXIMAB-DYYB
     Dosage: 500 MG EVERY 6 WEEKS
     Route: 042
     Dates: start: 20190522
  9. MELOXICAM. [Concomitant]
     Active Substance: MELOXICAM
     Dosage: 60 MG, AS NEEDED (PRN)
  10. INFLECTRA [Suspect]
     Active Substance: INFLIXIMAB-DYYB
     Indication: ANKYLOSING SPONDYLITIS
     Dosage: 464 MG, Q (EVERY) 0, 2, 6 WEEKS, THEN EVERY 8 WEEKS
     Route: 042
     Dates: start: 20171106, end: 20180208
  11. INFLECTRA [Suspect]
     Active Substance: INFLIXIMAB-DYYB
     Dosage: 464 MG, Q (EVERY) 0, 2, 6 WEEKS, THEN EVERY 8 WEEKS (Q0)
     Route: 042
     Dates: start: 20171106, end: 20171106
  12. INFLECTRA [Suspect]
     Active Substance: INFLIXIMAB-DYYB
     Dosage: 464 MG, Q (EVERY) 0, 2, 6 WEEKS, THEN EVERY 8 WEEKS
     Route: 042
     Dates: start: 20180208, end: 20180208
  13. INFLECTRA [Suspect]
     Active Substance: INFLIXIMAB-DYYB
     Dosage: 500 MG EVERY 6 WEEKS
     Route: 042
     Dates: start: 20180504

REACTIONS (6)
  - Condition aggravated [Unknown]
  - Transaminases increased [Unknown]
  - Intentional product use issue [Unknown]
  - Off label use [Unknown]
  - Hepatic steatosis [Unknown]
  - Myocardial infarction [Unknown]

NARRATIVE: CASE EVENT DATE: 201905
